FAERS Safety Report 8031200-X (Version None)
Quarter: 2012Q1

REPORT INFORMATION
  Report Type: 
  Country: None (occurrence: None)
  Receive Date: 20120109
  Receipt Date: 20120104
  Transmission Date: 20120608
  Serious: Yes (Other)
  Sender: FDA-Public Use
  Company Number: IE-COVIDIEN/TYCO HEALTHCARE/MALLINCKRODT-T201102522

PATIENT
  Sex: Male
  Weight: 55 kg

DRUGS (2)
  1. DIAZEPAM [Concomitant]
     Indication: PREMEDICATION
     Dosage: 10 MG, UNK
     Route: 048
     Dates: start: 20111107, end: 20111107
  2. OPTIRAY 160 [Suspect]
     Indication: ARTERIOGRAM CORONARY
     Dosage: 90 ML, SINGLE
     Route: 022
     Dates: start: 20111107, end: 20111107

REACTIONS (3)
  - ELECTROCARDIOGRAM ST SEGMENT ELEVATION [None]
  - HYPERTENSION [None]
  - CHEST PAIN [None]
